FAERS Safety Report 9984024 (Version 2)
Quarter: 2015Q1

REPORT INFORMATION
  Report Type: Report from Study
  Country: US (occurrence: US)
  Receive Date: 20140307
  Receipt Date: 20150216
  Transmission Date: 20150721
  Serious: Yes (Hospitalization)
  Sender: FDA-Public Use
  Company Number: US-ABBVIE-13P-163-1184364-00

PATIENT
  Age: 65 Year
  Sex: Female

DRUGS (2)
  1. HUMIRA [Suspect]
     Active Substance: ADALIMUMAB
     Indication: COLITIS ULCERATIVE
     Dates: start: 20130802, end: 201310
  2. HUMIRA [Suspect]
     Active Substance: ADALIMUMAB
     Dates: start: 20131227

REACTIONS (1)
  - Colostomy [Recovered/Resolved]

NARRATIVE: CASE EVENT DATE: 20131103
